FAERS Safety Report 16463524 (Version 3)
Quarter: 2019Q3

REPORT INFORMATION
  Report Type: Report from Study
  Country: US (occurrence: US)
  Receive Date: 20190621
  Receipt Date: 20190829
  Transmission Date: 20191004
  Serious: Yes (Hospitalization)
  Sender: FDA-Public Use
  Company Number: US-TEVA-2019-US-1066544

PATIENT
  Age: 38 Year
  Sex: Male

DRUGS (35)
  1. PROMETHAZINE [Concomitant]
     Active Substance: PROMETHAZINE HYDROCHLORIDE
     Dates: start: 2017
  2. SEROQUEL [Concomitant]
     Active Substance: QUETIAPINE FUMARATE
     Dates: start: 2017
  3. LEUCOVORIN. [Suspect]
     Active Substance: LEUCOVORIN
     Indication: COLORECTAL CANCER METASTATIC
     Route: 042
     Dates: start: 20181128, end: 20190515
  4. ALLEGRA [Concomitant]
     Active Substance: FEXOFENADINE HYDROCHLORIDE
     Dates: start: 20190119
  5. BENADRYL [Concomitant]
     Active Substance: DIPHENHYDRAMINE HYDROCHLORIDE
     Dates: start: 20190116
  6. LEXAPRO [Concomitant]
     Active Substance: ESCITALOPRAM OXALATE
     Dates: start: 2016
  7. 5-FLUOROURACIL [Suspect]
     Active Substance: FLUOROURACIL
     Dosage: FORTNIGHTY
     Route: 042
     Dates: start: 20190605
  8. BEVACIZUMAB. [Suspect]
     Active Substance: BEVACIZUMAB
     Route: 042
     Dates: start: 20190605
  9. NORMAL SALINE [Concomitant]
     Active Substance: SODIUM CHLORIDE
     Dates: start: 20181128
  10. CLONAZEPAM. [Concomitant]
     Active Substance: CLONAZEPAM
     Dates: start: 20180621
  11. LIDOCAINE. [Concomitant]
     Active Substance: LIDOCAINE
     Dates: start: 2016
  12. 5-FLUOROURACIL [Suspect]
     Active Substance: FLUOROURACIL
     Dosage: FORTNIGHTY
     Route: 040
     Dates: start: 20190605
  13. IRINOTECAN [Suspect]
     Active Substance: IRINOTECAN
     Indication: COLORECTAL CANCER METASTATIC
     Dosage: FORTNIGHTY
     Route: 042
     Dates: start: 20181128, end: 20190515
  14. LOMOTIL [Concomitant]
     Active Substance: ATROPINE SULFATE\DIPHENOXYLATE HYDROCHLORIDE
     Dates: start: 20181128
  15. DEXAMETHASONE. [Concomitant]
     Active Substance: DEXAMETHASONE
     Dates: start: 20181128
  16. PEPCID [Concomitant]
     Active Substance: FAMOTIDINE
     Dates: start: 20181128
  17. CARAFATE [Concomitant]
     Active Substance: SUCRALFATE
     Dates: start: 20190509
  18. AMLODIPINE [Concomitant]
     Active Substance: AMLODIPINE BESYLATE
     Dates: start: 2016
  19. PROTONIX [Concomitant]
     Active Substance: PANTOPRAZOLE SODIUM
     Dates: start: 20190214
  20. OXYCODONE [Concomitant]
     Active Substance: OXYCODONE
     Dates: start: 2016
  21. 5-FLUOROURACIL [Suspect]
     Active Substance: FLUOROURACIL
     Indication: COLORECTAL CANCER METASTATIC
     Dosage: FORTNIGHTY
     Route: 040
     Dates: start: 20181128, end: 20190515
  22. IRINOTECAN [Suspect]
     Active Substance: IRINOTECAN
     Dosage: FORTNIGHTY
     Route: 042
     Dates: start: 20190605
  23. EMEND [Concomitant]
     Active Substance: APREPITANT
     Dates: start: 20181128
  24. PROCHLORPERAZINE MALEATE. [Concomitant]
     Active Substance: PROCHLORPERAZINE MALEATE
     Dates: start: 2016
  25. 5-FLUOROURACIL [Suspect]
     Active Substance: FLUOROURACIL
     Dosage: FORTNIGHTY
     Route: 042
     Dates: start: 20181128, end: 20190515
  26. LEUCOVORIN. [Suspect]
     Active Substance: LEUCOVORIN
     Dosage: FORTNIGHTY
     Route: 042
     Dates: start: 20190605
  27. ALOXI [Concomitant]
     Active Substance: PALONOSETRON HYDROCHLORIDE
     Dates: start: 20181128
  28. FENTANYL. [Concomitant]
     Active Substance: FENTANYL
     Dates: start: 20190116, end: 20190514
  29. ELIQUIS [Concomitant]
     Active Substance: APIXABAN
     Dates: start: 20180621
  30. CHLORPROMAZINE. [Concomitant]
     Active Substance: CHLORPROMAZINE
     Dates: start: 201801
  31. ADVIL [Concomitant]
     Active Substance: IBUPROFEN
     Dates: start: 2016
  32. BEVACIZUMAB. [Suspect]
     Active Substance: BEVACIZUMAB
     Indication: COLORECTAL CANCER METASTATIC
     Route: 042
     Dates: start: 20181128, end: 20190515
  33. IMODIUM [Concomitant]
     Active Substance: LOPERAMIDE HYDROCHLORIDE
     Dates: start: 20181128
  34. TUMS [Concomitant]
     Active Substance: CALCIUM CARBONATE
     Dates: start: 20180207
  35. HYDRALAZINE [Concomitant]
     Active Substance: HYDRALAZINE HYDROCHLORIDE
     Dates: start: 2017

REACTIONS (2)
  - Febrile neutropenia [Recovered/Resolved]
  - Sepsis [Recovered/Resolved]

NARRATIVE: CASE EVENT DATE: 20190526
